FAERS Safety Report 7936747-X (Version None)
Quarter: 2011Q4

REPORT INFORMATION
  Report Type: 
  Country: None (occurrence: None)
  Receive Date: 20111123
  Receipt Date: 20111115
  Transmission Date: 20120403
  Serious: Yes (Life-Threatening, Hospitalization)
  Sender: FDA-Public Use
  Company Number: NO-ROCHE-1009850

PATIENT
  Sex: Male

DRUGS (4)
  1. LOSARTAN POTASSIUM [Concomitant]
  2. TIMOSAN (NORWAY) [Concomitant]
     Route: 047
  3. MABTHERA [Suspect]
     Indication: RHEUMATOID ARTHRITIS
     Dosage: ADMINISTERED ONLY ONCE
     Route: 041
     Dates: start: 20110601
  4. METHOTREXATE [Suspect]
     Indication: RHEUMATOID ARTHRITIS
     Route: 048
     Dates: start: 20061201

REACTIONS (2)
  - ALVEOLITIS [None]
  - RESPIRATORY FAILURE [None]
